FAERS Safety Report 6700068 (Version 3)
Quarter: 2015Q4

REPORT INFORMATION
  Report Type: Report from Study
  Country: FR (occurrence: FR)
  Receive Date: 20080715
  Receipt Date: 20151027
  Transmission Date: 20160305
  Serious: Yes (Other)
  Sender: FDA-Public Use
  Company Number: FR-ROCHE-574243

PATIENT
  Age: 50 Year
  Sex: Female
  Weight: 50 kg

DRUGS (10)
  1. PEG-INTERFERON ALFA 2A [Suspect]
     Active Substance: PEGINTERFERON ALFA-2A
     Dosage: FORM- INJ, DRUG- PEGASYS OPEN LABEL.
     Route: 058
  2. ATARAX [Concomitant]
     Active Substance: HYDROXYZINE\HYDROXYZINE HYDROCHLORIDE
     Dosage: UNIT- NOT PROVIDED DAILY DOSE=25 UNIT
     Route: 065
  3. ESTRADERM [Concomitant]
     Active Substance: ESTRADIOL
     Dosage: REPORTED AS ESTEDERM
     Route: 065
  4. RIBAVIRIN. [Suspect]
     Active Substance: RIBAVIRIN
     Indication: CHRONIC HEPATITIS C
     Route: 048
  5. KARDEGIC [Concomitant]
     Active Substance: ASPIRIN LYSINE
     Route: 065
  6. ABUFENE [Concomitant]
     Dosage: DRUG- ABUFEN
     Route: 065
  7. PEG-INTERFERON ALFA 2A [Suspect]
     Active Substance: PEGINTERFERON ALFA-2A
     Indication: CHRONIC HEPATITIS C
     Dosage: DOSE- 180 OU, FREQUENCY- QW, FORM- INJ
     Route: 058
  8. SERETIDE [Concomitant]
     Active Substance: FLUTICASONE FUROATE\SALMETEROL XINAFOATE
     Dosage: UNIT- ^BENFFER^ DAILY DOSE=1 UNIT
     Route: 065
  9. PROGESTERONE. [Concomitant]
     Active Substance: PROGESTERONE
     Dosage: UNIT- ^LI^ DAILY DOSE=1 UNIT
     Route: 065
  10. RO 4588161 (HCV POLYMERASE INHIBITOR) [Suspect]
     Active Substance: BALAPIRAVIR
     Indication: CHRONIC HEPATITIS C
     Dosage: DOSE- BLINDED. LAST DOSE PRIOR TO SAE 15 MAY 2008.
     Route: 048

REACTIONS (1)
  - Periodontal disease [Recovered/Resolved with Sequelae]

NARRATIVE: CASE EVENT DATE: 20080604
